FAERS Safety Report 6457357-X (Version None)
Quarter: 2009Q4

REPORT INFORMATION
  Report Type: 
  Country: None (occurrence: None)
  Receive Date: 20091123
  Receipt Date: 20091109
  Transmission Date: 20100525
  Serious: Yes (Hospitalization, Other)
  Sender: FDA-Public Use
  Company Number: VALS20090005

PATIENT
  Age: 85 Year
  Sex: Male

DRUGS (1)
  1. VALSTAR PRESERVATIVE FREE [Suspect]
     Indication: DRUG USE FOR UNKNOWN INDICATION
     Dosage: INTRAVESICAL
     Route: 043

REACTIONS (2)
  - SEPSIS [None]
  - URINARY TRACT INFECTION STAPHYLOCOCCAL [None]
